FAERS Safety Report 5425183-6 (Version None)
Quarter: 2007Q3

REPORT INFORMATION
  Report Type: 
  Country: None (occurrence: None)
  Receive Date: 20070824
  Receipt Date: 20070814
  Transmission Date: 20080115
  Serious: Yes (Other)
  Sender: FDA-Public Use
  Company Number: HU-ROCHE-511751

PATIENT
  Age: 56 Year
  Sex: Female
  Weight: 65 kg

DRUGS (4)
  1. CLONAZEPAM [Suspect]
     Indication: PHOBIA
     Dosage: DOSING REGIMEN REPORTED AS 3 X 0.5 MG/DAY.
     Route: 048
     Dates: start: 20070331
  2. SERDOLECT [Suspect]
     Dosage: DOSING REGIMEN REPORTED AS 1 X 12 MG/DAY.
     Route: 048
     Dates: start: 20070331, end: 20070730
  3. ANAFRANIL [Suspect]
     Indication: SLEEP DISORDER
     Dosage: DOSING REGIMEN: 10 MG X 2/DAY. OTHER INDICATION: MOOD DISORDER.
     Route: 048
     Dates: start: 20070410
  4. CONDROSULF [Suspect]
     Indication: DRUG USE FOR UNKNOWN INDICATION
     Dosage: DOSING REGIMEN: 400 MG X 2/DAY.
     Route: 048
     Dates: start: 20070701, end: 20070727

REACTIONS (3)
  - ASPHYXIA [None]
  - FATIGUE [None]
  - OEDEMA [None]
